FAERS Safety Report 24583388 (Version 1)
Quarter: 2024Q4

REPORT INFORMATION
  Report Type: Spontaneous
  Country: CN (occurrence: CN)
  Receive Date: 20241106
  Receipt Date: 20241106
  Transmission Date: 20250114
  Serious: Yes (Life-Threatening, Hospitalization)
  Sender: ROCHE
  Company Number: CN-ROCHE-10000124126

PATIENT
  Age: 62 Year
  Sex: Male

DRUGS (4)
  1. TRASTUZUMAB EMTANSINE [Suspect]
     Active Substance: TRASTUZUMAB EMTANSINE
     Indication: Lung carcinoma cell type unspecified recurrent
     Route: 042
     Dates: start: 20241019, end: 20241019
  2. TRASTUZUMAB EMTANSINE [Suspect]
     Active Substance: TRASTUZUMAB EMTANSINE
     Indication: Lung adenocarcinoma
  3. PEMETREXED DISODIUM [Suspect]
     Active Substance: PEMETREXED DISODIUM
     Indication: Lung adenocarcinoma
     Route: 042
     Dates: start: 20241018, end: 20241018
  4. PEMETREXED DISODIUM [Suspect]
     Active Substance: PEMETREXED DISODIUM
     Indication: Lung carcinoma cell type unspecified recurrent

REACTIONS (2)
  - Myelosuppression [Recovering/Resolving]
  - Off label use [Unknown]

NARRATIVE: CASE EVENT DATE: 20241025
